FAERS Safety Report 19139443 (Version 1)
Quarter: 2021Q2

REPORT INFORMATION
  Report Type: Spontaneous
  Country: US (occurrence: US)
  Receive Date: 20210415
  Receipt Date: 20210415
  Transmission Date: 20210717
  Serious: Yes (Hospitalization)
  Sender: FDA-Public Use
  Company Number: None

PATIENT
  Age: 76 Year
  Sex: Male
  Weight: 64 kg

DRUGS (1)
  1. BAMLANIVIMAB/ETESEVIMAB (EUA) (BAMLANIVIMAB 700MG/ETESEVIMAB 140 (EUA) [Suspect]
     Active Substance: BAMLANIVIMAB\ETESEVIMAB
     Indication: COVID-19 TREATMENT
     Dosage: ?          OTHER ROUTE:IV?
     Dates: start: 20210407, end: 20210407

REACTIONS (4)
  - Hypoxia [None]
  - Fatigue [None]
  - Chills [None]
  - Malaise [None]

NARRATIVE: CASE EVENT DATE: 20210407
